FAERS Safety Report 16851214 (Version 1)
Quarter: 2019Q3

REPORT INFORMATION
  Report Type: Spontaneous
  Country: US (occurrence: US)
  Receive Date: 20190925
  Receipt Date: 20190925
  Transmission Date: 20191005
  Serious: No
  Sender: FDA-Public Use
  Company Number: US-PFIZER INC-2019409285

PATIENT
  Age: 55 Year
  Sex: Female
  Weight: 72.56 kg

DRUGS (4)
  1. WARFARIN [Concomitant]
     Active Substance: WARFARIN
     Dosage: UNK
  2. REMODULIN [Suspect]
     Active Substance: TREPROSTINIL
     Indication: PULMONARY ARTERIAL HYPERTENSION
     Dosage: UNK(90 NG/KG/MIN)
     Route: 058
     Dates: start: 20140530
  3. SILDENAFIL CITRATE. [Suspect]
     Active Substance: SILDENAFIL CITRATE
     Dosage: UNK
  4. AMBRISENTAN [Concomitant]
     Active Substance: AMBRISENTAN
     Dosage: UNK

REACTIONS (6)
  - Rash erythematous [Unknown]
  - Palpitations [Unknown]
  - Insomnia [Unknown]
  - Skin disorder [Unknown]
  - Nasal congestion [Unknown]
  - Diarrhoea [Unknown]
